FAERS Safety Report 4339428-7 (Version None)
Quarter: 2004Q2

REPORT INFORMATION
  Report Type: 
  Country: None (occurrence: None)
  Receive Date: 20040415
  Receipt Date: 20030617
  Transmission Date: 20050107
  Serious: Yes (Hospitalization)
  Sender: FDA-Public Use
  Company Number: US-GLAXOSMITHKLINE-A0413828A

PATIENT
  Age: 66 Year
  Sex: Female
  Weight: 79.1 kg

DRUGS (1)
  1. AVANDIA [Suspect]
     Route: 048

REACTIONS (5)
  - ACUTE MYOCARDIAL INFARCTION [None]
  - CARDIAC FAILURE CONGESTIVE [None]
  - CARDIOGENIC SHOCK [None]
  - ISCHAEMIC CARDIOMYOPATHY [None]
  - MITRAL VALVE DISEASE [None]
